FAERS Safety Report 9100870 (Version 1)
Quarter: 2013Q1

REPORT INFORMATION
  Report Type: Spontaneous
  Country: US (occurrence: None)
  Receive Date: 20130220
  Receipt Date: 20130220
  Transmission Date: 20140127
  Serious: Yes (Life-Threatening, Other)
  Sender: FDA-Public Use
  Company Number: None

PATIENT
  Age: 39 Year
  Sex: Female
  Weight: 61.24 kg

DRUGS (2)
  1. NUVIGIL [Suspect]
     Indication: CIRCADIAN RHYTHM SLEEP DISORDER
     Dosage: 125MG  AM AND PM  PO
     Route: 048
     Dates: start: 20120101, end: 20130214
  2. NUVIGIL [Suspect]
     Indication: ATTENTION DEFICIT/HYPERACTIVITY DISORDER
     Dosage: 125MG  AM AND PM  PO
     Route: 048
     Dates: start: 20120101, end: 20130214

REACTIONS (5)
  - Wrong technique in drug usage process [None]
  - Mood altered [None]
  - Anger [None]
  - Anger [None]
  - Violence-related symptom [None]
